FAERS Safety Report 5450432-8 (Version None)
Quarter: 2007Q3

REPORT INFORMATION
  Report Type: 
  Country: None (occurrence: None)
  Receive Date: 20070803
  Receipt Date: 20070509
  Transmission Date: 20080115
  Serious: Yes (Other)
  Sender: FDA-Public Use
  Company Number: 36919

PATIENT
  Sex: Male

DRUGS (7)
  1. PROPOFOL [Suspect]
     Dosage: 280MG/IV
     Route: 042
     Dates: start: 20070430
  2. PROPOFOL [Suspect]
  3. PROPOFOL [Suspect]
     Dosage: 280MG/IV
     Route: 042
     Dates: start: 20070430
  4. DIOVAN [Concomitant]
  5. ZETIA [Concomitant]
  6. ASPIRIN [Concomitant]
  7. FISH OIL [Concomitant]

REACTIONS (2)
  - HEADACHE [None]
  - PYREXIA [None]
